FAERS Safety Report 8350196-4 (Version None)
Quarter: 2012Q2

REPORT INFORMATION
  Report Type: 
  Country: None (occurrence: None)
  Receive Date: 20120510
  Receipt Date: 20120430
  Transmission Date: 20120825
  Serious: Yes (Hospitalization)
  Sender: FDA-Public Use
  Company Number: FR-TEVA-336561ISR

PATIENT
  Age: 80 Year
  Sex: Female

DRUGS (1)
  1. METFORMIN HCL [Suspect]
     Route: 065

REACTIONS (4)
  - TOXICITY TO VARIOUS AGENTS [None]
  - RENAL FAILURE [None]
  - DRUG LEVEL ABOVE THERAPEUTIC [None]
  - LACTIC ACIDOSIS [None]
